FAERS Safety Report 18234309 (Version 3)
Quarter: 2020Q4

REPORT INFORMATION
  Report Type: Spontaneous
  Country: AU (occurrence: AU)
  Receive Date: 20200904
  Receipt Date: 20201015
  Transmission Date: 20210113
  Serious: Yes (Other)
  Sender: FDA-Public Use
  Company Number: AU-009507513-2009AUS000775

PATIENT
  Sex: Female

DRUGS (6)
  1. PREDNISONE. [Suspect]
     Active Substance: PREDNISONE
     Dosage: 10 MILLIGRAM
     Dates: start: 201507
  2. PREDNISONE. [Suspect]
     Active Substance: PREDNISONE
     Dosage: 100 MILLIGRAM, DAILY FOR ONE WEEK
     Dates: start: 201506, end: 2015
  3. KEYTRUDA [Suspect]
     Active Substance: PEMBROLIZUMAB
     Indication: MALIGNANT MELANOMA
     Dosage: UNK, Q3W
     Route: 042
     Dates: start: 201409, end: 201506
  4. PREDNISONE. [Suspect]
     Active Substance: PREDNISONE
     Dosage: 50 MILLIGRAM, DAILY FOR TWO WEEKS
     Dates: start: 2015, end: 2015
  5. PREDNISONE. [Suspect]
     Active Substance: PREDNISONE
     Dosage: 4 MILLIGRAM, QD
     Dates: start: 201508, end: 201509
  6. PREDNISONE. [Suspect]
     Active Substance: PREDNISONE
     Dosage: 75 MILLIGRAM, DAILY FOR ONE WEEK
     Dates: start: 2015, end: 2015

REACTIONS (34)
  - Pupil fixed [Unknown]
  - Hypothyroidism [Unknown]
  - Toxicity to various agents [Unknown]
  - Pigmentation disorder [Unknown]
  - Impaired work ability [Unknown]
  - Fluid retention [Unknown]
  - Cataract [Unknown]
  - Migraine [Unknown]
  - Headache [Unknown]
  - Iris adhesions [Unknown]
  - Immune-mediated hepatitis [Unknown]
  - Adverse drug reaction [Unknown]
  - Quality of life decreased [Unknown]
  - Lipoma [Unknown]
  - Discomfort [Unknown]
  - Peripheral swelling [Not Recovered/Not Resolved]
  - Dry eye [Unknown]
  - Cushing^s syndrome [Unknown]
  - Immune-mediated thyroiditis [Unknown]
  - Exercise tolerance decreased [Unknown]
  - Osteopenia [Unknown]
  - Synovitis [Unknown]
  - Macular oedema [Unknown]
  - Therapy partial responder [Unknown]
  - Hepatic cancer [Not Recovered/Not Resolved]
  - Retinal oedema [Unknown]
  - Autoimmune disorder [Unknown]
  - Immune-mediated uveitis [Unknown]
  - Sinusitis [Unknown]
  - Photopsia [Unknown]
  - Eye operation [Unknown]
  - Disorder of orbit [Unknown]
  - Dizziness [Unknown]
  - Diarrhoea [Unknown]

NARRATIVE: CASE EVENT DATE: 2015
